FAERS Safety Report 9642551 (Version 2)
Quarter: 2013Q4

REPORT INFORMATION
  Report Type: Spontaneous
  Country: ES (occurrence: ES)
  Receive Date: 20131024
  Receipt Date: 20131031
  Transmission Date: 20140711
  Serious: Yes (Death, Other)
  Sender: FDA-Public Use
  Company Number: ES-RANBAXY-2013RR-74285

PATIENT
  Age: 90 Year
  Sex: Female

DRUGS (3)
  1. FUROSEMIDE [Suspect]
     Indication: ACUTE MYOCARDIAL INFARCTION
     Dosage: UNK
     Route: 042
  2. FUROSEMIDE [Suspect]
     Indication: ACUTE PULMONARY OEDEMA
  3. RISPERIDONE [Suspect]
     Indication: HALLUCINATION, VISUAL
     Dosage: UNK
     Route: 065

REACTIONS (2)
  - Pemphigoid [Fatal]
  - Sepsis [Fatal]
